FAERS Safety Report 4975483-9 (Version None)
Quarter: 2006Q2

REPORT INFORMATION
  Report Type: 
  Country: None (occurrence: None)
  Receive Date: 20060410
  Receipt Date: 20060330
  Transmission Date: 20061013
  Serious: Yes (Hospitalization)
  Sender: FDA-Public Use
  Company Number: CERZ-11065

PATIENT
  Age: 42 Year
  Sex: Male
  Weight: 50 kg

DRUGS (5)
  1. CEREZYME [Suspect]
     Indication: GAUCHER'S DISEASE
     Dosage: 60 U/KG Q2WKS IV
     Route: 042
     Dates: start: 20021210
  2. CLONAZEPAM [Concomitant]
  3. PHENOBARBITAL TAB [Concomitant]
  4. PHENYTOIN [Concomitant]
  5. CARBAMAZEPINE [Concomitant]

REACTIONS (1)
  - BLADDER CANCER [None]
